FAERS Safety Report 5708769-0 (Version None)
Quarter: 2008Q2

REPORT INFORMATION
  Report Type: 
  Country: None (occurrence: None)
  Receive Date: 20080416
  Receipt Date: 20080403
  Transmission Date: 20081010
  Serious: Yes (Hospitalization)
  Sender: FDA-Public Use
  Company Number: 230002M08NOR

PATIENT
  Age: 43 Year
  Sex: Male

DRUGS (1)
  1. REBIF [Suspect]
     Dosage: 44 MG, 1 IN 1 WEEKS, SUBCUTANEOUS
     Route: 058
     Dates: start: 20060401, end: 20071101

REACTIONS (3)
  - BLOOD THYROID STIMULATING HORMONE INCREASED [None]
  - CHRONIC LEUKAEMIA [None]
  - VITAMIN B12 INCREASED [None]
